FAERS Safety Report 10440312 (Version 1)
Quarter: 2014Q3

REPORT INFORMATION
  Report Type: Spontaneous
  Country: US (occurrence: US)
  Receive Date: 20140909
  Receipt Date: 20140909
  Transmission Date: 20150326
  Serious: No
  Sender: FDA-Public Use
  Company Number: US-ASTRAZENECA-2014SE59440

PATIENT
  Age: 38 Year
  Sex: Female
  Weight: 61 kg

DRUGS (1)
  1. ZOLADEX [Suspect]
     Active Substance: GOSERELIN ACETATE
     Indication: BREAST CANCER FEMALE
     Route: 058

REACTIONS (2)
  - Menstrual disorder [Unknown]
  - Drug dose omission [Unknown]
